FAERS Safety Report 14931991 (Version 1)
Quarter: 2018Q2

REPORT INFORMATION
  Report Type: Spontaneous
  Country: GB (occurrence: GB)
  Receive Date: 20180524
  Receipt Date: 20180524
  Transmission Date: 20180711
  Serious: Yes (Other)
  Sender: FDA-Public Use
  Company Number: GB-TEVA-2018-GB-896072

PATIENT
  Age: 37 Year
  Sex: Female
  Weight: 58.06 kg

DRUGS (2)
  1. OMEPRAZOLE. [Concomitant]
     Active Substance: OMEPRAZOLE
  2. TRIMETHOPRIM. [Suspect]
     Active Substance: TRIMETHOPRIM
     Indication: ACNE
     Dosage: 400 MILLIGRAM DAILY;
     Route: 048
     Dates: start: 20180103, end: 20180315

REACTIONS (7)
  - Fatigue [Not Recovered/Not Resolved]
  - Headache [Recovering/Resolving]
  - Malaise [Recovering/Resolving]
  - Dizziness [Not Recovered/Not Resolved]
  - Anxiety [Not Recovered/Not Resolved]
  - Nausea [Not Recovered/Not Resolved]
  - Panic attack [Not Recovered/Not Resolved]

NARRATIVE: CASE EVENT DATE: 20180201
